FAERS Safety Report 4969001-9 (Version None)
Quarter: 2006Q2

REPORT INFORMATION
  Report Type: 
  Country: None (occurrence: None)
  Receive Date: 20060411
  Receipt Date: 20060330
  Transmission Date: 20061013
  Serious: Yes (Disabling, Other)
  Sender: FDA-Public Use
  Company Number: DE-MERCK-0603DEU00208

PATIENT
  Sex: Male

DRUGS (1)
  1. VIOXX [Suspect]
     Route: 048
     Dates: start: 19990101

REACTIONS (3)
  - DUODENAL ULCER [None]
  - GASTRODUODENAL HAEMORRHAGE [None]
  - MYOCARDIAL INFARCTION [None]
